FAERS Safety Report 21136648 (Version 1)
Quarter: 2022Q3

REPORT INFORMATION
  Report Type: Spontaneous
  Country: US (occurrence: None)
  Receive Date: 20220726
  Receipt Date: 20220726
  Transmission Date: 20221026
  Serious: No
  Sender: FDA-Public Use
  Company Number: None

PATIENT
  Age: 73 Year
  Sex: Male

DRUGS (1)
  1. EMPAGLIFLOZIN [Suspect]
     Active Substance: EMPAGLIFLOZIN
     Indication: Diabetes mellitus
     Dates: start: 20210606, end: 20220524

REACTIONS (5)
  - Flushing [None]
  - Urosepsis [None]
  - Bacteraemia [None]
  - Septic shock [None]
  - Drug hypersensitivity [None]

NARRATIVE: CASE EVENT DATE: 20220524
